FAERS Safety Report 6851313-5 (Version None)
Quarter: 2010Q3

REPORT INFORMATION
  Report Type: 
  Country: None (occurrence: None)
  Receive Date: 20100717
  Receipt Date: 20080114
  Transmission Date: 20110219
  Serious: No
  Sender: FDA-Public Use
  Company Number: US-PFIZER INC-2008006580

PATIENT
  Sex: Female
  Weight: 56.2 kg

DRUGS (5)
  1. CHANTIX [Suspect]
     Indication: SMOKING CESSATION THERAPY
     Dates: start: 20071108
  2. CITALOPRAM HYDROBROMIDE [Concomitant]
     Indication: DEPRESSION
  3. METHYLTESTOSTERONE [Concomitant]
     Indication: MENOPAUSAL SYMPTOMS
  4. VITAMINS [Concomitant]
  5. FIBRE, DIETARY [Concomitant]

REACTIONS (2)
  - ASTHENIA [None]
  - FATIGUE [None]
